FAERS Safety Report 5018420-3 (Version None)
Quarter: 2006Q2

REPORT INFORMATION
  Report Type: 
  Country: None (occurrence: None)
  Receive Date: 20060605
  Receipt Date: 20060525
  Transmission Date: 20061013
  Serious: Yes (Death, Other)
  Sender: FDA-Public Use
  Company Number: CZ-BRISTOL-MYERS SQUIBB COMPANY-13391982

PATIENT
  Sex: Male

DRUGS (2)
  1. MEGACE [Suspect]
     Indication: CACHEXIA
     Route: 048
     Dates: start: 20040414, end: 20040609
  2. RADIOTHERAPY [Concomitant]

REACTIONS (3)
  - GASTROINTESTINAL DISORDER [None]
  - MYOCARDIAL INFARCTION [None]
  - NAUSEA [None]
